FAERS Safety Report 9753996 (Version 1)
Quarter: 2013Q4

REPORT INFORMATION
  Report Type: Spontaneous
  Country: US (occurrence: US)
  Receive Date: 20131213
  Receipt Date: 20131213
  Transmission Date: 20140711
  Serious: No
  Sender: FDA-Public Use
  Company Number: US-GLAXOSMITHKLINE-A1005526A

PATIENT
  Age: 53 Year
  Sex: Female

DRUGS (2)
  1. NICORETTE NICOTINE POLACRILEX CHERRY LOZENGE, 4MG [Suspect]
     Indication: EX-TOBACCO USER
  2. NICORETTE FRUIT CHILL OTC 2MG [Suspect]
     Indication: EX-TOBACCO USER

REACTIONS (3)
  - Glossodynia [Not Recovered/Not Resolved]
  - Paraesthesia oral [Not Recovered/Not Resolved]
  - Sensation of foreign body [Recovered/Resolved]
